FAERS Safety Report 19565419 (Version 1)
Quarter: 2021Q3

REPORT INFORMATION
  Report Type: Spontaneous
  Country: US (occurrence: US)
  Receive Date: 20210714
  Receipt Date: 20210714
  Transmission Date: 20211014
  Serious: Yes (Other)
  Sender: FDA-Public Use
  Company Number: US-BRISTOL-MYERS SQUIBB COMPANY-BMS-2021-067190

PATIENT
  Age: 46 Year
  Sex: Female
  Weight: 67.12 kg

DRUGS (1)
  1. ELIQUIS [Suspect]
     Active Substance: APIXABAN
     Indication: ANTIPHOSPHOLIPID SYNDROME
     Dosage: 5 MILLIGRAM, BID
     Route: 048
     Dates: start: 202104

REACTIONS (12)
  - Asthenia [Unknown]
  - Myalgia [Unknown]
  - Drug ineffective for unapproved indication [Unknown]
  - Peripheral venous disease [Unknown]
  - Intentional product use issue [Unknown]
  - Muscle spasms [Unknown]
  - Neuralgia [Unknown]
  - Weight increased [Unknown]
  - Peripheral swelling [Unknown]
  - Malaise [Unknown]
  - Pain in extremity [Unknown]
  - Thrombosis [Unknown]
